FAERS Safety Report 5333060-4 (Version None)
Quarter: 2007Q2

REPORT INFORMATION
  Report Type: 
  Country: None (occurrence: None)
  Receive Date: 20070521
  Receipt Date: 20070521
  Transmission Date: 20071010
  Serious: Yes (Life-Threatening, Hospitalization, Disabling)
  Sender: FDA-Public Use
  Company Number: None

PATIENT
  Age: 55 Year
  Sex: Male
  Weight: 65.7716 kg

DRUGS (13)
  1. PACLITAXEL [Suspect]
     Indication: NON-SMALL CELL LUNG CANCER
     Dosage: 150MG QWK IV
     Route: 042
     Dates: start: 20070223, end: 20070315
  2. CARBOPLATIN [Suspect]
     Indication: NON-SMALL CELL LUNG CANCER
     Dosage: 230 MG -} 155MG QWK IV
     Route: 042
     Dates: start: 20070223, end: 20070315
  3. DIPHENHYDRAMINE HCL [Concomitant]
  4. FAMOTIDINE [Concomitant]
  5. DEXAMETHASONE [Concomitant]
  6. ONDANSETRON [Concomitant]
  7. APREPITANT [Concomitant]
  8. PERCOCET [Concomitant]
  9. PREVACID [Concomitant]
  10. REGLAN [Concomitant]
  11. COLACE [Concomitant]
  12. DEXAMETHASONE TAB [Concomitant]
  13. IBUPROFEN [Concomitant]

REACTIONS (5)
  - CARDIAC FAILURE CONGESTIVE [None]
  - CHEST PAIN [None]
  - HAEMOPTYSIS [None]
  - IRON DEFICIENCY ANAEMIA [None]
  - RENAL FAILURE ACUTE [None]
